FAERS Safety Report 14830782 (Version 4)
Quarter: 2018Q3

REPORT INFORMATION
  Report Type: Report from Study
  Country: US (occurrence: US)
  Receive Date: 20180430
  Receipt Date: 20180910
  Transmission Date: 20181010
  Serious: No
  Sender: FDA-Public Use
  Company Number: US-SA-2018SA106576

PATIENT
  Age: 72 Year
  Sex: Female

DRUGS (5)
  1. ALIROCUMAB [Suspect]
     Active Substance: ALIROCUMAB
     Indication: BLOOD CHOLESTEROL INCREASED
     Dosage: 150 MG,QOW
     Route: 058
     Dates: start: 20180412
  2. ALIROCUMAB [Suspect]
     Active Substance: ALIROCUMAB
     Dosage: 150 MG, QM
     Dates: start: 2018
  3. REPATHA [Concomitant]
     Active Substance: EVOLOCUMAB
     Dosage: UNK UNK,UNK
     Route: 065
  4. ALIROCUMAB PREFILLED PEN [Suspect]
     Active Substance: ALIROCUMAB
     Indication: BLOOD CHOLESTEROL INCREASED
     Dosage: 150 MG, QOW
     Dates: start: 20180412
  5. ALIROCUMAB PREFILLED PEN [Suspect]
     Active Substance: ALIROCUMAB
     Dosage: 150 MG, QM
     Dates: start: 2018

REACTIONS (19)
  - Nasopharyngitis [Recovered/Resolved]
  - Expired product administered [Unknown]
  - Fatigue [Not Recovered/Not Resolved]
  - Blood glucose decreased [Recovered/Resolved]
  - Tremor [Recovered/Resolved]
  - Weight increased [Unknown]
  - Myalgia [Unknown]
  - Dyspnoea [Not Recovered/Not Resolved]
  - Product use issue [Unknown]
  - Influenza like illness [Unknown]
  - Musculoskeletal stiffness [Unknown]
  - Arthropathy [Unknown]
  - Disorientation [Recovered/Resolved]
  - Arthralgia [Unknown]
  - Asthenia [Unknown]
  - Musculoskeletal chest pain [Recovered/Resolved]
  - Appetite disorder [Not Recovered/Not Resolved]
  - Muscular weakness [Unknown]
  - Dysstasia [Not Recovered/Not Resolved]

NARRATIVE: CASE EVENT DATE: 2018
